FAERS Safety Report 11813627 (Version 1)
Quarter: 2015Q4

REPORT INFORMATION
  Report Type: Spontaneous
  Country: JP (occurrence: JP)
  Receive Date: 20151209
  Receipt Date: 20151209
  Transmission Date: 20160305
  Serious: Yes (Other)
  Sender: FDA-Public Use
  Company Number: JP-FERRINGPH-2015FE03599

PATIENT

DRUGS (4)
  1. PROGESTERONE. [Concomitant]
     Active Substance: PROGESTERONE
     Indication: PROGESTIN REPLACEMENT THERAPY
     Dosage: 75 MG, DAILY
     Route: 030
     Dates: start: 20150914, end: 20151020
  2. LUTINUS [Suspect]
     Active Substance: PROGESTERONE
     Indication: ASSISTED FERTILISATION
     Dosage: 300 MG, DAILY
     Route: 067
     Dates: start: 20150909, end: 20151020
  3. LUTORAL [Concomitant]
     Active Substance: CHLORMADINONE ACETATE\MESTRANOL
     Indication: PROGESTIN REPLACEMENT THERAPY
     Dosage: 12 MG, DAILY
     Route: 048
     Dates: start: 20150909, end: 20151020
  4. ESTRANA [Concomitant]
     Indication: HORMONE REPLACEMENT THERAPY
     Dosage: 2.16 MG, DAILY
     Route: 062
     Dates: start: 20150828, end: 20151020

REACTIONS (6)
  - Biochemical pregnancy [Recovered/Resolved]
  - Abortion missed [None]
  - Vaginal infection [Recovered/Resolved]
  - Peritonitis [Recovered/Resolved]
  - Escherichia vaginitis [None]
  - Maternal exposure during pregnancy [None]

NARRATIVE: CASE EVENT DATE: 20150915
